FAERS Safety Report 22031030 (Version 3)
Quarter: 2023Q2

REPORT INFORMATION
  Report Type: Other
  Country: US (occurrence: US)
  Receive Date: 20230223
  Receipt Date: 20230601
  Transmission Date: 20230721
  Serious: Yes (Death)
  Sender: FDA-Public Use
  Company Number: US-INTERCEPT-PM2023000333

PATIENT
  Sex: Male
  Weight: 69.841 kg

DRUGS (7)
  1. OCALIVA [Suspect]
     Active Substance: OBETICHOLIC ACID
     Indication: Primary biliary cholangitis
     Dosage: 5 MILLIGRAM, QD
     Route: 048
     Dates: start: 20190909
  2. OCALIVA [Suspect]
     Active Substance: OBETICHOLIC ACID
     Dosage: 10 MILLIGRAM, QD
     Route: 048
  3. OCALIVA [Suspect]
     Active Substance: OBETICHOLIC ACID
     Dosage: 5 MILLIGRAM, QD
     Route: 048
  4. URSODIOL [Concomitant]
     Active Substance: URSODIOL
  5. LEVOTHYROXINE SODIUM [Concomitant]
     Active Substance: LEVOTHYROXINE SODIUM
  6. ASPIRIN [Concomitant]
     Active Substance: ASPIRIN
  7. ATORVASTATIN CALCIUM [Concomitant]
     Active Substance: ATORVASTATIN CALCIUM

REACTIONS (2)
  - Cerebrovascular disorder [Fatal]
  - Dysphagia [Fatal]
